FAERS Safety Report 8244441-3 (Version None)
Quarter: 2012Q1

REPORT INFORMATION
  Report Type: 
  Country: None (occurrence: None)
  Receive Date: 20120329
  Receipt Date: 20120327
  Transmission Date: 20120608
  Serious: Yes (Death)
  Sender: FDA-Public Use
  Company Number: US-PFIZER INC-2012061241

PATIENT
  Sex: Male

DRUGS (4)
  1. NORVASC [Suspect]
     Dosage: UNK
  2. GLYNASE [Suspect]
     Dosage: UNK
  3. PROTONIX [Suspect]
     Dosage: 40 MG, UNK
  4. NEURONTIN [Suspect]
     Dosage: UNK

REACTIONS (2)
  - DYSPNOEA [None]
  - DEATH [None]
